FAERS Safety Report 15367179 (Version 1)
Quarter: 2018Q3

REPORT INFORMATION
  Report Type: Spontaneous
  Country: US (occurrence: US)
  Receive Date: 20180910
  Receipt Date: 20180910
  Transmission Date: 20181010
  Serious: No
  Sender: FDA-Public Use
  Company Number: US-ALLERGAN-1752333US

PATIENT
  Sex: Male
  Weight: 79.38 kg

DRUGS (1)
  1. SUCRALFATE UNK [Suspect]
     Active Substance: SUCRALFATE
     Indication: GASTRIC DISORDER
     Dosage: 1 G, 1?2 TIMES DAILY
     Route: 048
     Dates: end: 201709

REACTIONS (3)
  - Product physical issue [Unknown]
  - Inappropriate schedule of drug administration [Unknown]
  - Choking [Not Recovered/Not Resolved]
